FAERS Safety Report 6910331-9 (Version None)
Quarter: 2010Q3

REPORT INFORMATION
  Report Type: 
  Country: None (occurrence: None)
  Receive Date: 20100806
  Receipt Date: 20100727
  Transmission Date: 20110219
  Serious: Yes (Other)
  Sender: FDA-Public Use
  Company Number: US-PFIZER INC-2005151281

PATIENT
  Sex: Female

DRUGS (12)
  1. NEURONTIN [Suspect]
     Dosage: 600 MG, UNK
     Dates: start: 20011001, end: 20010101
  2. NEURONTIN [Suspect]
     Dosage: 60 MG, UNK
     Dates: start: 20020509
  3. TEMAZEPAM [Suspect]
  4. CLONAZEPAM [Suspect]
  5. TYLENOL W/ CODEINE NO. 3 [Suspect]
  6. OXYCONTIN [Suspect]
  7. ROBAXIN [Suspect]
  8. VICODIN [Suspect]
  9. CHLORAL HYDRATE [Suspect]
  10. EFFEXOR XR [Suspect]
  11. PAXIL [Suspect]
  12. SEROQUEL [Suspect]

REACTIONS (12)
  - CEREBRAL INFARCTION [None]
  - COMA [None]
  - CYANOSIS [None]
  - DRUG INEFFECTIVE [None]
  - DYSPNOEA [None]
  - HEPATIC FUNCTION ABNORMAL [None]
  - HYPOXIC-ISCHAEMIC ENCEPHALOPATHY [None]
  - INTENTIONAL OVERDOSE [None]
  - RENAL FAILURE [None]
  - RESPIRATORY FAILURE [None]
  - RHABDOMYOLYSIS [None]
  - SUICIDE ATTEMPT [None]
